FAERS Safety Report 4742263-9 (Version None)
Quarter: 2005Q3

REPORT INFORMATION
  Report Type: 
  Country: None (occurrence: None)
  Receive Date: 20050810
  Receipt Date: 20050810
  Transmission Date: 20060218
  Serious: Yes (Other)
  Sender: FDA-Public Use
  Company Number: None

PATIENT
  Age: 79 Year
  Sex: Male
  Weight: 65.7716 kg

DRUGS (11)
  1. HYDROCHLOROTHIAZIDE/TRIAMTERENE  50/75 [Suspect]
     Indication: ASCITES
     Dosage: 1 DAILY
     Dates: start: 20050125, end: 20050519
  2. HYDROCHLOROTHIAZIDE/TRIAMTERENE  50/75 [Suspect]
     Indication: HYPERTENSION
     Dosage: 1 DAILY
     Dates: start: 20050125, end: 20050519
  3. SPIRONOLACTONE [Suspect]
     Indication: ASCITES
     Dosage: 100 MG DAILY
     Dates: start: 20041228, end: 20050519
  4. PROPRANOLOL 40MG DAILY [Suspect]
     Dosage: REMOVED 11/04, 5/19
  5. . [Concomitant]
  6. . [Concomitant]
  7. . [Concomitant]
  8. . [Concomitant]
  9. . [Concomitant]
  10. . [Concomitant]
  11. . [Concomitant]

REACTIONS (4)
  - BLOOD CREATININE INCREASED [None]
  - BLOOD PRESSURE ORTHOSTATIC ABNORMAL [None]
  - CONFUSIONAL STATE [None]
  - FALL [None]
